FAERS Safety Report 14411784 (Version 1)
Quarter: 2018Q1

REPORT INFORMATION
  Report Type: Spontaneous
  Country: VN (occurrence: VN)
  Receive Date: 20180119
  Receipt Date: 20180119
  Transmission Date: 20180509
  Serious: Yes (Other)
  Sender: FDA-Public Use
  Company Number: VN-ASTELLAS-2018US003656

PATIENT
  Sex: Male

DRUGS (25)
  1. PIRACETAM [Concomitant]
     Active Substance: PIRACETAM
     Indication: PRODUCT USED FOR UNKNOWN INDICATION
     Dosage: 1G X 2 AMPULSES, UNKNOWN FREQ.
     Route: 065
     Dates: start: 20180106
  2. PANTOLOC                           /01263204/ [Concomitant]
     Active Substance: PANTOPRAZOLE SODIUM
     Indication: PRODUCT USED FOR UNKNOWN INDICATION
     Dosage: 40MG X 1 AMPULSE, UNKNOWN FREQ.
     Route: 065
  3. TACROLIMUS. [Suspect]
     Active Substance: TACROLIMUS
     Dosage: 6MG (DAILY DOSE), TWICE DAILY
     Route: 048
  4. ROCEPHIN [Concomitant]
     Active Substance: CEFTRIAXONE SODIUM
     Dosage: 1 G X 2 AMPULSES
     Route: 065
     Dates: start: 20180107
  5. TAVANIC [Concomitant]
     Active Substance: LEVOFLOXACIN
     Dosage: 0,5 X 1 BOTTLE, UNKNOWN FREQ.
     Route: 065
     Dates: start: 20180107
  6. PARACETAMOL [Concomitant]
     Active Substance: ACETAMINOPHEN
     Indication: PRODUCT USED FOR UNKNOWN INDICATION
     Dosage: 1G X 2 AMPULSES, UNKNOWN FREQ.
     Route: 065
  7. CELLCEPT [Concomitant]
     Active Substance: MYCOPHENOLATE MOFETIL\MYCOPHENOLATE MOFETIL HYDROCHLORIDE
     Dosage: 0,25 X 8 PILLS, UNKNOWN FREQ.
     Route: 065
     Dates: start: 20180107
  8. TAVANIC [Concomitant]
     Active Substance: LEVOFLOXACIN
     Indication: PRODUCT USED FOR UNKNOWN INDICATION
     Dosage: 0,5 X 1 AMPULSE, UNKNOWN FREQ.
     Route: 065
     Dates: start: 20180106
  9. KCL [Concomitant]
     Active Substance: POTASSIUM CHLORIDE
     Indication: PRODUCT USED FOR UNKNOWN INDICATION
     Dosage: 1G X 2 AMPULES, UNKNOWN FREQ.
     Route: 065
     Dates: start: 20180106
  10. TACROLIMUS. [Suspect]
     Active Substance: TACROLIMUS
     Dosage: 1MG X 6 CAPSULES, UNKNOWN FREQ.
     Route: 065
     Dates: start: 20180108, end: 20180109
  11. DOPEGYT [Concomitant]
     Active Substance: METHYLDOPA
     Dosage: 0,25 X 4 PILLS, UNKNOWN FREQ..
     Route: 065
     Dates: start: 20180107
  12. SEDUXEN                            /00017001/ [Concomitant]
     Indication: PRODUCT USED FOR UNKNOWN INDICATION
     Dosage: 5MG X 1 PILL, UNKNOWN FREQ.
     Route: 065
  13. BETALOC                            /00376902/ [Concomitant]
     Active Substance: METOPROLOL TARTRATE
     Indication: PRODUCT USED FOR UNKNOWN INDICATION
     Dosage: 50MG X 1 PILL, UNKNOWN FREQ.
     Route: 065
  14. CELLCEPT [Concomitant]
     Active Substance: MYCOPHENOLATE MOFETIL\MYCOPHENOLATE MOFETIL HYDROCHLORIDE
     Indication: PRODUCT USED FOR UNKNOWN INDICATION
     Dosage: 0,25 X 4 PILLS, UNKNOWN FREQ.
     Route: 065
     Dates: start: 20180106
  15. SOLU-MEDROL [Concomitant]
     Active Substance: METHYLPREDNISOLONE SODIUM SUCCINATE
     Indication: PRODUCT USED FOR UNKNOWN INDICATION
     Dosage: 40MG X 3 AMPULSES, UNKNOWN FREQ.
     Route: 065
  16. TACROLIMUS. [Suspect]
     Active Substance: TACROLIMUS
     Dosage: 8MG (DAILY DOSE), TWICE DAILY, 8 AM (4 CAPS) AND 8 PM (4 CAPS)
     Route: 048
     Dates: start: 20180110, end: 20180110
  17. DOPEGYT [Concomitant]
     Active Substance: METHYLDOPA
     Indication: PRODUCT USED FOR UNKNOWN INDICATION
     Dosage: 0,25 X 2 PILLS, UNKNOWN FREQ.
     Route: 065
     Dates: start: 20180106
  18. ADALAT CC [Concomitant]
     Active Substance: NIFEDIPINE
     Indication: PRODUCT USED FOR UNKNOWN INDICATION
     Dosage: 30 MG (1 PILL), ONCE DAILY
     Route: 065
     Dates: start: 20180106
  19. ADALAT CC [Concomitant]
     Active Substance: NIFEDIPINE
     Dosage: 30MG X 2 PILLS, UNKNOWN FREQ.
     Route: 065
     Dates: start: 20180107
  20. BUSCOPAN [Concomitant]
     Active Substance: BUTYLSCOPOLAMINE BROMIDE
     Indication: PRODUCT USED FOR UNKNOWN INDICATION
     Dosage: 10MG X 1 AMPULSE,UNKNOWN FREQ.
     Route: 065
  21. ACYCLOVIR                          /00587301/ [Concomitant]
     Active Substance: ACYCLOVIR
     Indication: PRODUCT USED FOR UNKNOWN INDICATION
     Dosage: 0,2 X 4 PILLS, UNKNOWN FREQ.
     Route: 065
  22. BISEPTOL [Concomitant]
     Active Substance: SULFAMETHOXAZOLE\TRIMETHOPRIM
     Indication: PRODUCT USED FOR UNKNOWN INDICATION
     Dosage: 0,48 X 1 PILLS, UNKNOWN FREQ.
     Route: 065
  23. TACROLIMUS. [Suspect]
     Active Substance: TACROLIMUS
     Indication: IMMUNOSUPPRESSION
     Dosage: 12 MG, UNKNOWN FREQ. (1ST TIME: AT 7 A.M, ONCE TIME ONLY, 2ND TIME: 8 AM TOOK 6 CAPS + 20 PM TOOK 6)
     Route: 048
     Dates: start: 20180106, end: 20180107
  24. ROCEPHIN [Concomitant]
     Active Substance: CEFTRIAXONE SODIUM
     Indication: PRODUCT USED FOR UNKNOWN INDICATION
     Dosage: 1 G X 2 AMPULSES, UNKNOWN FREQ.
     Route: 065
     Dates: start: 20180106
  25. NICARDIPINE [Concomitant]
     Active Substance: NICARDIPINE
     Indication: PRODUCT USED FOR UNKNOWN INDICATION
     Dosage: 10MG X 4 AMPULSES, UNKNOWN FREQ.
     Route: 065

REACTIONS (1)
  - Immunosuppressant drug level increased [Recovered/Resolved]

NARRATIVE: CASE EVENT DATE: 20180108
